FAERS Safety Report 6959379-9 (Version None)
Quarter: 2010Q3

REPORT INFORMATION
  Report Type: 
  Country: None (occurrence: None)
  Receive Date: 20100831
  Receipt Date: 20100831
  Transmission Date: 20110219
  Serious: Yes (Hospitalization)
  Sender: FDA-Public Use
  Company Number: None

PATIENT
  Sex: Female
  Weight: 112.27 kg

DRUGS (2)
  1. FLUOROURACIL [Suspect]
     Dosage: 9000 MG
     Dates: end: 20100403
  2. ELOXATIN [Suspect]
     Dosage: 200 MG
     Dates: end: 20100329

REACTIONS (14)
  - ANAEMIA [None]
  - ARTHRITIS BACTERIAL [None]
  - BACTERIAL SEPSIS [None]
  - BLOOD CREATININE INCREASED [None]
  - DEPRESSION [None]
  - DIARRHOEA [None]
  - DRUG TOXICITY [None]
  - HYPERTENSION [None]
  - HYPONATRAEMIA [None]
  - HYPOPHAGIA [None]
  - INCORRECT DOSE ADMINISTERED [None]
  - INFECTION [None]
  - LEUKOCYTOSIS [None]
  - STAPHYLOCOCCAL SEPSIS [None]
